FAERS Safety Report 5518893-3 (Version None)
Quarter: 2007Q4

REPORT INFORMATION
  Report Type: 
  Country: None (occurrence: None)
  Receive Date: 20071114
  Receipt Date: 20071105
  Transmission Date: 20080405
  Serious: Yes (Other)
  Sender: FDA-Public Use
  Company Number: 2007334600

PATIENT
  Age: 3 Year
  Sex: Female

DRUGS (1)
  1. PEDIACARE CHILDREN'S MULTI-SYMPTOM COLD (PE) (DEXTROMETHORPHAN, PHENYL [Suspect]
     Dosage: 1/2 BOTTLE ONCE, ORAL
     Route: 048
     Dates: start: 20071105, end: 20071105

REACTIONS (2)
  - ACCIDENTAL EXPOSURE [None]
  - PSYCHOMOTOR HYPERACTIVITY [None]
